FAERS Safety Report 8469910-2 (Version None)
Quarter: 2012Q2

REPORT INFORMATION
  Report Type: 
  Country: None (occurrence: None)
  Receive Date: 20120627
  Receipt Date: 20120619
  Transmission Date: 20120825
  Serious: Yes (Other)
  Sender: FDA-Public Use
  Company Number: US-BIOGENIDEC-2011BI038793

PATIENT
  Age: 68 Year
  Sex: Female
  Weight: 81 kg

DRUGS (10)
  1. METHADONE HCL [Concomitant]
     Route: 048
  2. PROVIGIL [Concomitant]
     Indication: FATIGUE
     Route: 048
     Dates: start: 20111004
  3. BUMETADINE [Concomitant]
     Indication: HYPERTENSION
     Dates: start: 20070101
  4. APLENZIN [Concomitant]
     Indication: DEPRESSION
     Dates: start: 20090512
  5. LIPITOR [Concomitant]
     Indication: HYPERCHOLESTEROLAEMIA
     Route: 048
     Dates: start: 20070101
  6. PRAZOSIN [Concomitant]
     Indication: HYPERTENSION
     Route: 048
     Dates: start: 20070101
  7. TYSABRI [Suspect]
     Indication: MULTIPLE SCLEROSIS
     Route: 042
     Dates: start: 20070405
  8. CARTIA XT [Concomitant]
     Indication: HYPERTENSION
     Route: 048
     Dates: start: 20070101
  9. PEPCID [Concomitant]
     Indication: GASTROOESOPHAGEAL REFLUX DISEASE
     Route: 048
     Dates: start: 20070101
  10. MIRALAX [Concomitant]
     Indication: CONSTIPATION

REACTIONS (1)
  - BREAST CANCER IN SITU [None]
